FAERS Safety Report 8133316-6 (Version None)
Quarter: 2012Q1

REPORT INFORMATION
  Report Type: 
  Country: None (occurrence: None)
  Receive Date: 20120213
  Receipt Date: 20120206
  Transmission Date: 20120608
  Serious: Yes (Hospitalization)
  Sender: FDA-Public Use
  Company Number: JP-ROCHE-768804

PATIENT
  Sex: Female

DRUGS (41)
  1. ACTEMRA [Suspect]
     Route: 041
     Dates: start: 20091023, end: 20091023
  2. METHYLPREDNISOLONE [Suspect]
     Route: 048
  3. FAMOTIDINE [Concomitant]
     Route: 048
  4. NEUROTROPIN [Concomitant]
     Dosage: INTRAVENOUS (NOT OTHERWISE SPECIFIED), TAKEN AS NEEDED
     Route: 042
  5. ACTEMRA [Suspect]
     Route: 041
     Dates: start: 20100108, end: 20100108
  6. METHYLPREDNISOLONE [Suspect]
     Route: 048
     Dates: start: 20090410, end: 20090730
  7. CARVEDILOL [Concomitant]
     Indication: HYPERTENSION
     Route: 048
  8. SULFAMETHOXAZOLE AND TRIMETHOPRIM [Concomitant]
     Route: 048
  9. ACTEMRA [Suspect]
     Route: 041
     Dates: start: 20090828, end: 20090828
  10. ACTEMRA [Suspect]
     Route: 041
     Dates: start: 20090925, end: 20090925
  11. DEXAMETHASONE SODIUM PHOSPHATE [Suspect]
     Indication: PRODUCT USED FOR UNKNOWN INDICATION
     Dosage: DRUG: DECADRON
     Route: 041
     Dates: start: 20090207, end: 20090207
  12. OLMESARTAN MEDOXOMIL [Concomitant]
     Indication: HYPERTENSION
     Route: 048
  13. METHYLPREDNISOLONE [Suspect]
     Route: 048
  14. METHYLPREDNISOLONE [Suspect]
     Route: 048
     Dates: start: 20090731, end: 20090923
  15. METHYLPREDNISOLONE [Suspect]
     Route: 048
     Dates: start: 20090801, end: 20090924
  16. CELECOXIB [Concomitant]
     Indication: RHEUMATOID ARTHRITIS
     Dosage: DRUG: CELECOX
     Route: 048
  17. VOLTAREN [Concomitant]
     Dosage: DOSE FORM:JELLY, TAKEN AS NEEDED,DICLOFENAC SODIUM
     Route: 003
  18. METHYLPREDNISOLONE [Suspect]
     Route: 048
  19. LIPITOR [Concomitant]
     Indication: HYPERLIPIDAEMIA
     Dosage: DRUG: ATORVASTATIN CALCIUM
     Route: 048
  20. OPALMON [Concomitant]
     Dosage: DRUG: LIMAPROST ALFADEX
     Route: 048
  21. ACTEMRA [Suspect]
     Indication: RHEUMATOID ARTHRITIS
     Route: 041
     Dates: start: 20090415, end: 20090415
  22. ACTEMRA [Suspect]
     Route: 041
     Dates: start: 20090508, end: 20090508
  23. ACTEMRA [Suspect]
     Route: 041
     Dates: start: 20090703, end: 20090703
  24. METHYLPREDNISOLONE [Suspect]
     Indication: RHEUMATOID ARTHRITIS
     Dosage: DRUG: MEDROL
     Route: 048
  25. DEXAMETHASONE SODIUM PHOSPHATE [Suspect]
     Dosage: INFUSION RATE DECREASED.
     Route: 041
  26. TACROLIMUS [Suspect]
     Route: 048
     Dates: start: 20090327, end: 20090410
  27. BROMFENAC SODIUM [Concomitant]
     Indication: HERPES SIMPLEX OPHTHALMIC
     Dosage: DRUG:BRONUCK(BROMFENAC SODIUM HYDRATE), DOSE FORM: EYE DROP,TAKEN AS NEEDED
     Route: 047
  28. PAXIL [Concomitant]
     Indication: DEPRESSION
     Dosage: DRUG: PAROXETINE HYDROCHLORIDE HYDRATE
     Route: 048
  29. ACTEMRA [Suspect]
     Route: 041
     Dates: start: 20090731, end: 20090731
  30. ACTEMRA [Suspect]
     Route: 041
     Dates: start: 20091120, end: 20091120
  31. ZOVIRAX [Concomitant]
     Indication: HERPES SIMPLEX OPHTHALMIC
     Dosage: DOSE FORM;EYE DROP, TAKEN AS NEEDED
     Route: 047
  32. AMARYL [Concomitant]
     Indication: DIABETES MELLITUS
     Route: 048
  33. ELCITONIN [Concomitant]
     Indication: OSTEOPOROSIS
     Dosage: DRUG: ELCITONIN INJ.20S(ELCATONIN)
     Route: 030
  34. LASIX [Concomitant]
     Dosage: DOSE FORM: MINUTE GRAIN
     Route: 048
     Dates: start: 20090403, end: 20090409
  35. LASIX [Concomitant]
     Route: 048
  36. ACTEMRA [Suspect]
     Route: 041
     Dates: start: 20090605, end: 20090605
  37. ACTEMRA [Suspect]
     Route: 041
     Dates: start: 20091211, end: 20091211
  38. ACTEMRA [Suspect]
     Dosage: INFUSION RATE DECREASED.
     Route: 041
  39. TACROLIMUS [Suspect]
     Indication: RHEUMATOID ARTHRITIS
     Dosage: DRUG: PROGRAF(TACROLIMUS HYDRATE)
     Route: 048
  40. VOLTAREN [Concomitant]
     Dosage: DRUG: DICLOFENAC SODIUM, TAKEN AS NEEDED, DOSE FORM:SUPPOSITORIAE RECTALEY
     Route: 054
  41. HYALEIN [Concomitant]
     Dosage: TAKEN AS NEEDED, DOSE FORM:EYE DROP
     Route: 047

REACTIONS (3)
  - ABSCESS LIMB [None]
  - UPPER RESPIRATORY TRACT INFLAMMATION [None]
  - BRONCHITIS [None]
